FAERS Safety Report 8851798 (Version 1)
Quarter: 2012Q4

REPORT INFORMATION
  Report Type: Spontaneous
  Country: US (occurrence: None)
  Receive Date: 20121018
  Receipt Date: 20121018
  Transmission Date: 20130627
  Serious: Yes (Hospitalization)
  Sender: FDA-Public Use
  Company Number: None

PATIENT
  Age: 31 Year
  Sex: Male
  Weight: 83.01 kg

DRUGS (1)
  1. VIIBRYD [Suspect]
     Indication: MAJOR DEPRESSION
     Route: 048
     Dates: start: 20120830, end: 20120922

REACTIONS (8)
  - Decreased appetite [None]
  - Contusion [None]
  - Diarrhoea [None]
  - Nausea [None]
  - Hyperhidrosis [None]
  - Dry mouth [None]
  - Headache [None]
  - Insomnia [None]
